FAERS Safety Report 4351075-X (Version None)
Quarter: 2004Q2

REPORT INFORMATION
  Report Type: 
  Country: None (occurrence: None)
  Receive Date: 20040427
  Receipt Date: 20040408
  Transmission Date: 20050107
  Serious: No
  Sender: FDA-Public Use
  Company Number: PHNU2004DE01069

PATIENT
  Age: 53 Year
  Sex: Male

DRUGS (1)
  1. VISUDYNE [Suspect]
     Indication: MACULAR DEGENERATION
     Dosage: NI
     Dates: start: 20030610, end: 20030610

REACTIONS (5)
  - CONDITION AGGRAVATED [None]
  - DISEASE PROGRESSION [None]
  - EYE DISORDER [None]
  - EYE HAEMORRHAGE [None]
  - VISUAL DISTURBANCE [None]
